FAERS Safety Report 20812106 (Version 2)
Quarter: 2022Q2

REPORT INFORMATION
  Report Type: Spontaneous
  Country: FR (occurrence: FR)
  Receive Date: 20220511
  Receipt Date: 20220511
  Transmission Date: 20220720
  Serious: Yes (Death, Other)
  Sender: FDA-Public Use
  Company Number: None

PATIENT
  Age: 0 Day
  Sex: Female
  Weight: 2.85 kg

DRUGS (7)
  1. FINGOLIMOD [Suspect]
     Active Substance: FINGOLIMOD
     Indication: Multiple sclerosis
     Dosage: 0.5 MG, TWICE DAILY (2X/DAY)
     Route: 064
     Dates: start: 20201207, end: 20201225
  2. FINGOLIMOD [Suspect]
     Active Substance: FINGOLIMOD
     Dosage: 5 MG, QD
     Route: 064
     Dates: start: 20201207, end: 20201225
  3. TAMSULOSIN HYDROCHLORIDE [Suspect]
     Active Substance: TAMSULOSIN HYDROCHLORIDE
     Indication: Urinary incontinence
     Dosage: UNK
     Route: 064
     Dates: start: 20201207, end: 20201225
  4. METHYLPREDNISOLONE HEMISUCCINATE [Suspect]
     Active Substance: METHYLPREDNISOLONE HEMISUCCINATE
     Indication: Multiple sclerosis
     Dosage: 1 G, QD
     Route: 064
     Dates: start: 202102, end: 202102
  5. TOVIAZ [Suspect]
     Active Substance: FESOTERODINE FUMARATE
     Indication: Urinary incontinence
     Dosage: UNK UNK, UNKNOWN FREQ.
     Route: 064
     Dates: start: 20201207, end: 20201225
  6. NATALIZUMAB [Suspect]
     Active Substance: NATALIZUMAB
     Indication: Multiple sclerosis
     Dosage: 300 MG, QM
     Route: 064
     Dates: start: 20210318, end: 20210708
  7. TAMSULOSIN HYDROCHLORIDE [Suspect]
     Active Substance: TAMSULOSIN HYDROCHLORIDE
     Indication: Urinary incontinence
     Dosage: UNK
     Route: 064
     Dates: start: 20201207, end: 20201225

REACTIONS (4)
  - Pulmonary arterial hypertension [Fatal]
  - Atrial septal defect [Fatal]
  - Patent ductus arteriosus [Fatal]
  - Foetal exposure during pregnancy [Unknown]

NARRATIVE: CASE EVENT DATE: 20210827
